FAERS Safety Report 10096194 (Version 2)
Quarter: 2014Q2

REPORT INFORMATION
  Report Type: Report from Study
  Country: FR (occurrence: FR)
  Receive Date: 20140422
  Receipt Date: 20140520
  Transmission Date: 20141212
  Serious: Yes (Hospitalization)
  Sender: FDA-Public Use
  Company Number: FR-JNJFOC-20140411533

PATIENT
  Age: 14 Year
  Sex: Male
  Weight: 39.5 kg

DRUGS (3)
  1. REMICADE [Suspect]
     Indication: CROHN^S DISEASE
     Route: 042
     Dates: start: 20110624
  2. AZATHIOPRINE [Concomitant]
     Route: 065
  3. MODULEN [Concomitant]
     Route: 065

REACTIONS (1)
  - Anal abscess [Recovered/Resolved with Sequelae]
